FAERS Safety Report 8128469-X (Version None)
Quarter: 2012Q1

REPORT INFORMATION
  Report Type: 
  Country: None (occurrence: None)
  Receive Date: 20120210
  Receipt Date: 20120206
  Transmission Date: 20120608
  Serious: Yes (Death)
  Sender: FDA-Public Use
  Company Number: US-BAYER-2012-012232

PATIENT
  Age: 52 Year
  Sex: Male

DRUGS (4)
  1. ASPIRIN [Suspect]
     Dosage: DAILY DOSE 81 MG
     Route: 048
     Dates: end: 20110906
  2. ASPIRIN [Suspect]
     Dosage: UNK
     Route: 048
     Dates: end: 20110906
  3. PERCOCET [Suspect]
     Dosage: UNK
     Route: 048
     Dates: end: 20110906
  4. EXCEDRIN EXTRA STRENGTH TABLETS [Suspect]
     Indication: PAIN
     Dosage: UNK UNK, PRN
     Route: 048
     Dates: end: 20110906

REACTIONS (2)
  - THROMBOSIS [None]
  - CARDIOVASCULAR DISORDER [None]
